FAERS Safety Report 8343928 (Version 5)
Quarter: 2012Q4

REPORT INFORMATION
  Report Type: Report from Study
  Country: US (occurrence: US)
  Receive Date: 20120119
  Receipt Date: 20121022
  Transmission Date: 20130627
  Serious: Yes (Hospitalization)
  Sender: FDA-Public Use
  Company Number: GB-ASTRAZENECA-2011SE60905

PATIENT
  Sex: Female

DRUGS (16)
  1. LISINOPRIL/HCTZ [Suspect]
     Indication: HYPERTENSION
     Dosage: 20/12.5 MG DAILY
     Route: 048
     Dates: start: 2010, end: 20111003
  2. PROZAC [Suspect]
     Indication: DEPRESSION
     Route: 048
     Dates: start: 2009
  3. NKTR-118 [Suspect]
     Indication: CONSTIPATION
     Route: 048
     Dates: start: 20110830, end: 20111003
  4. SEROQUEL [Concomitant]
     Indication: DEPRESSION
     Route: 048
     Dates: start: 2000
  5. SEROQUEL [Concomitant]
     Indication: INSOMNIA
     Route: 048
     Dates: start: 2000
  6. LORTAB [Concomitant]
     Indication: ARTHRITIS
     Route: 048
     Dates: start: 20110705, end: 20110828
  7. LORTAB [Concomitant]
     Indication: ARTHRITIS
     Route: 048
     Dates: start: 20110831
  8. BACLOFEN [Concomitant]
     Indication: MUSCLE SPASMS
     Route: 048
     Dates: start: 2009
  9. ZOCOR [Concomitant]
     Indication: BLOOD CHOLESTEROL INCREASED
     Route: 048
     Dates: start: 2010
  10. XANAX [Concomitant]
     Indication: ANXIETY
     Route: 048
     Dates: start: 2009
  11. GABAPENTIN [Concomitant]
     Indication: NEUROPATHY PERIPHERAL
     Route: 048
     Dates: start: 2008
  12. MOBIC [Concomitant]
     Indication: ARTHRITIS
     Route: 048
     Dates: start: 2008
  13. TRAZADONE [Concomitant]
     Indication: INSOMNIA
     Route: 048
     Dates: start: 2011
  14. TRAZADONE [Concomitant]
     Indication: SLEEP DISORDER
     Route: 048
     Dates: start: 2011
  15. KEFZOL [Concomitant]
     Indication: INFECTION PROPHYLAXIS
     Route: 042
     Dates: start: 20111003, end: 20111003
  16. ZOFRAN [Concomitant]
     Indication: NAUSEA
     Route: 042
     Dates: start: 20111003, end: 20111003

REACTIONS (4)
  - Hypokalaemia [Recovered/Resolved]
  - Syncope [Recovered/Resolved]
  - Hypotension [Recovered/Resolved]
  - Hyponatraemia [Recovered/Resolved]
